FAERS Safety Report 9494077 (Version 1)
Quarter: 2013Q3

REPORT INFORMATION
  Report Type: Spontaneous
  Country: US (occurrence: None)
  Receive Date: 20130829
  Receipt Date: 20130829
  Transmission Date: 20140515
  Serious: No
  Sender: FDA-Public Use
  Company Number: None

PATIENT
  Age: 57 Year
  Sex: Female

DRUGS (1)
  1. GLEEVEC [Suspect]
     Route: 048
     Dates: start: 20130608

REACTIONS (2)
  - Nightmare [None]
  - Sleep terror [None]
